FAERS Safety Report 8860614 (Version 5)
Quarter: 2012Q4

REPORT INFORMATION
  Report Type: 
  Country: US (occurrence: US)
  Receive Date: 20121025
  Receipt Date: 20121130
  Transmission Date: 20130627
  Serious: Yes (Hospitalization)
  Sender: FDA-Public Use
  Company Number: US-ASTRAZENECA-2012SE80374

PATIENT
  Age: 73 Year
  Sex: Female
  Weight: 77.1 kg

DRUGS (5)
  1. NEXIUM [Suspect]
     Indication: GASTROOESOPHAGEAL REFLUX DISEASE
     Dosage: DAILY
     Route: 048
  2. NEXIUM [Suspect]
     Indication: ULCER HAEMORRHAGE
     Dosage: DAILY
     Route: 048
  3. NEXIUM [Suspect]
     Indication: GASTROOESOPHAGEAL REFLUX DISEASE
     Route: 048
     Dates: start: 20120724
  4. NEXIUM [Suspect]
     Indication: ULCER HAEMORRHAGE
     Route: 048
     Dates: start: 20120724
  5. PRILOSEC [Suspect]
     Route: 048

REACTIONS (12)
  - Burning sensation [Unknown]
  - Ulcer haemorrhage [Unknown]
  - Haemorrhage [Unknown]
  - Liver disorder [Unknown]
  - Diabetes mellitus [Unknown]
  - Upper gastrointestinal haemorrhage [Unknown]
  - Cough [Unknown]
  - Anxiety [Unknown]
  - Deafness [Unknown]
  - Off label use [Unknown]
  - Intentional drug misuse [Unknown]
  - Drug ineffective [Unknown]
